FAERS Safety Report 17227921 (Version 1)
Quarter: 2020Q1

REPORT INFORMATION
  Report Type: Spontaneous
  Country: US (occurrence: US)
  Receive Date: 20200103
  Receipt Date: 20200103
  Transmission Date: 20200409
  Serious: No
  Sender: FDA-Public Use
  Company Number: US-LUPIN PHARMACEUTICALS INC.-2019-03558

PATIENT
  Sex: Female

DRUGS (2)
  1. METHYLPHENIDATE HYDROCHLORIDE TABLET, USP, 20 MG [Suspect]
     Active Substance: METHYLPHENIDATE HYDROCHLORIDE
     Indication: PRODUCT USED FOR UNKNOWN INDICATION
     Dosage: UNK
     Route: 065
  2. METHYLPHENIDATE HYDROCHLORIDE TABLET, USP, 20 MG [Suspect]
     Active Substance: METHYLPHENIDATE HYDROCHLORIDE
     Dosage: UNK (DOUBLE THE DOSE)
     Route: 065

REACTIONS (2)
  - Extra dose administered [Unknown]
  - Drug ineffective [Unknown]
